FAERS Safety Report 5971244-2 (Version None)
Quarter: 2008Q4

REPORT INFORMATION
  Report Type: 
  Country: None (occurrence: None)
  Receive Date: 20081128
  Receipt Date: 20081114
  Transmission Date: 20090506
  Serious: Yes (Death, Life-Threatening, Hospitalization)
  Sender: FDA-Public Use
  Company Number: JP-PFIZER INC-2008087498

PATIENT
  Age: 61 Year
  Sex: Male

DRUGS (1)
  1. ZYVOX [Suspect]
     Indication: STAPHYLOCOCCAL INFECTION
     Dosage: DAILY DOSE:600MG
     Route: 042
     Dates: start: 20081002, end: 20081015

REACTIONS (3)
  - DISEASE PROGRESSION [None]
  - HYPOPHARYNGEAL CANCER [None]
  - THROMBOCYTOPENIA [None]
